FAERS Safety Report 15085304 (Version 2)
Quarter: 2018Q3

REPORT INFORMATION
  Report Type: Spontaneous
  Country: US (occurrence: US)
  Receive Date: 20180628
  Receipt Date: 20180710
  Transmission Date: 20181010
  Serious: Yes (Other)
  Sender: FDA-Public Use
  Company Number: US-SHIRE-US201822611

PATIENT
  Age: 61 Year
  Sex: Female

DRUGS (2)
  1. GATTEX [Suspect]
     Active Substance: TEDUGLUTIDE\WATER
     Indication: SHORT-BOWEL SYNDROME
     Dosage: 2.4 MG,1X/DAY:QD
     Route: 058
     Dates: start: 20161129
  2. GATTEX [Suspect]
     Active Substance: TEDUGLUTIDE\WATER
     Dosage: 2.4 MG, 1X/DAY:QD
     Route: 058
     Dates: start: 20161130, end: 20180621

REACTIONS (2)
  - Inappropriate schedule of drug administration [Unknown]
  - Colitis ulcerative [Unknown]

NARRATIVE: CASE EVENT DATE: 20180501
